FAERS Safety Report 4979014-9 (Version None)
Quarter: 2006Q2

REPORT INFORMATION
  Report Type: 
  Country: None (occurrence: None)
  Receive Date: 20060421
  Receipt Date: 20060407
  Transmission Date: 20061013
  Serious: Yes (Death)
  Sender: FDA-Public Use
  Company Number: PHBS2006JP05227

PATIENT
  Age: 38 Year
  Sex: Female
  Weight: 43 kg

DRUGS (2)
  1. DICLOFENAC SODIUM [Suspect]
     Indication: PYREXIA
     Route: 048
  2. MEFENAMIC ACID [Suspect]
     Indication: PYREXIA
     Route: 048

REACTIONS (4)
  - BRAIN OEDEMA [None]
  - HEPATIC STEATOSIS [None]
  - RENAL DISORDER [None]
  - REYE'S SYNDROME [None]
